FAERS Safety Report 7560762-1 (Version None)
Quarter: 2011Q2

REPORT INFORMATION
  Report Type: 
  Country: None (occurrence: None)
  Receive Date: 20110620
  Receipt Date: 20110620
  Transmission Date: 20111010
  Serious: No
  Sender: FDA-Public Use
  Company Number: None

PATIENT
  Sex: Male
  Weight: 86.1834 kg

DRUGS (1)
  1. PRAMIPEXOLE DIHYDROCHLORIDE [Suspect]
     Indication: RESTLESS LEGS SYNDROME
     Dosage: 0.5 MG AT BEDTIME ORAL
     Route: 048
     Dates: start: 20110202, end: 20110215

REACTIONS (9)
  - GAIT DISTURBANCE [None]
  - CONFUSIONAL STATE [None]
  - PRODUCT SUBSTITUTION ISSUE [None]
  - SUDDEN ONSET OF SLEEP [None]
  - DYSPNOEA [None]
  - ARTHRALGIA [None]
  - FATIGUE [None]
  - SOMNOLENCE [None]
  - MEMORY IMPAIRMENT [None]
